FAERS Safety Report 9244887 (Version 1)
Quarter: 2013Q2

REPORT INFORMATION
  Report Type: Spontaneous
  Country: PL (occurrence: PL)
  Receive Date: 20130422
  Receipt Date: 20130422
  Transmission Date: 20140414
  Serious: Yes (Other)
  Sender: FDA-Public Use
  Company Number: PL-JNJFOC-20130406930

PATIENT
  Age: 40 Year
  Sex: Male

DRUGS (1)
  1. RISPOLEPT CONSTA [Suspect]
     Indication: PRODUCT USED FOR UNKNOWN INDICATION
     Route: 030
     Dates: start: 1999, end: 200512

REACTIONS (2)
  - Tardive dyskinesia [Not Recovered/Not Resolved]
  - Fear [Not Recovered/Not Resolved]
